FAERS Safety Report 10741079 (Version 3)
Quarter: 2015Q3

REPORT INFORMATION
  Report Type: Report from Study
  Country: BR (occurrence: BR)
  Receive Date: 20150127
  Receipt Date: 20150707
  Transmission Date: 20151125
  Serious: Yes (Hospitalization, Other)
  Sender: FDA-Public Use
  Company Number: BR-ABBVIE-15K-020-1335733-00

PATIENT
  Age: 67 Year
  Sex: Female
  Weight: 80 kg

DRUGS (7)
  1. HUMIRA [Suspect]
     Active Substance: ADALIMUMAB
     Indication: RHEUMATOID ARTHRITIS
     Route: 058
     Dates: start: 20140129
  2. SLOW K [Concomitant]
     Active Substance: POTASSIUM CHLORIDE
     Indication: MUSCLE SPASMS
     Route: 048
  3. POTASSIUM CHLORIDE. [Concomitant]
     Active Substance: POTASSIUM CHLORIDE
     Indication: PROPHYLAXIS
  4. BENICAR [Concomitant]
     Active Substance: OLMESARTAN MEDOXOMIL
     Indication: HYPERTENSION
     Route: 048
     Dates: start: 2005
  5. ATENOLOL. [Concomitant]
     Active Substance: ATENOLOL
     Indication: HYPERTENSION
     Route: 048
  6. POTASSIUM CHLORIDE. [Concomitant]
     Active Substance: POTASSIUM CHLORIDE
     Indication: MUSCLE SPASMS
     Route: 048
     Dates: start: 2012
  7. DIAMOX SEQUELS [Concomitant]
     Active Substance: ACETAZOLAMIDE
     Indication: OCULAR DISCOMFORT
     Dosage: 1 OR 2 TB DAILY
     Route: 048
     Dates: start: 2012

REACTIONS (15)
  - Pain in extremity [Recovering/Resolving]
  - Hypertension [Unknown]
  - Cataract [Recovering/Resolving]
  - Musculoskeletal pain [Recovering/Resolving]
  - Eye infection [Recovering/Resolving]
  - Gallbladder oedema [Unknown]
  - Arthralgia [Recovering/Resolving]
  - Cholecystitis infective [Unknown]
  - Dysgeusia [Unknown]
  - Cholelithiasis [Recovering/Resolving]
  - Cholecystitis [Unknown]
  - Joint range of motion decreased [Unknown]
  - Weight decreased [Unknown]
  - Drug effect incomplete [Not Recovered/Not Resolved]
  - Eye infection [Recovering/Resolving]

NARRATIVE: CASE EVENT DATE: 20141120
